FAERS Safety Report 9783454 (Version 1)
Quarter: 2013Q4

REPORT INFORMATION
  Report Type: Spontaneous
  Country: US (occurrence: None)
  Receive Date: 20131223
  Receipt Date: 20131223
  Transmission Date: 20140711
  Serious: Yes (Other)
  Sender: FDA-Public Use
  Company Number: 2013-003368

PATIENT
  Age: 35 Year
  Sex: Female

DRUGS (1)
  1. MINASTRIN 24 FE [Suspect]
     Indication: CONTRACEPTION
     Route: 048
     Dates: start: 2013, end: 2013

REACTIONS (4)
  - Abortion spontaneous [None]
  - Drug ineffective [None]
  - Pregnancy [None]
  - Wrong technique in drug usage process [None]
